FAERS Safety Report 18843553 (Version 1)
Quarter: 2021Q1

REPORT INFORMATION
  Report Type: Report from Study
  Country: CA (occurrence: CA)
  Receive Date: 20210203
  Receipt Date: 20210203
  Transmission Date: 20210419
  Serious: No
  Sender: FDA-Public Use
  Company Number: CA-EXELIXIS-CABO-20028241

PATIENT
  Age: 84 Year
  Sex: Male

DRUGS (1)
  1. CABOMETYX [Suspect]
     Active Substance: CABOZANTINIB S-MALATE
     Indication: RENAL CELL CARCINOMA
     Dosage: 20 MG, QD
     Route: 048
     Dates: start: 20190819, end: 20200302

REACTIONS (7)
  - Pneumonia bacterial [Recovered/Resolved]
  - Fatigue [Unknown]
  - Oropharyngeal pain [Unknown]
  - Bowel movement irregularity [Unknown]
  - Nausea [Unknown]
  - Bronchitis [Unknown]
  - Angina pectoris [Unknown]

NARRATIVE: CASE EVENT DATE: 202002
